FAERS Safety Report 21895200 (Version 2)
Quarter: 2023Q1

REPORT INFORMATION
  Report Type: Spontaneous
  Country: US (occurrence: US)
  Receive Date: 20230123
  Receipt Date: 20230130
  Transmission Date: 20230418
  Serious: Yes (Hospitalization, Other)
  Sender: FDA-Public Use
  Company Number: US-drreddys-LIT/USA/23/0160217

PATIENT
  Age: 27 Year
  Sex: Female
  Weight: 66 kg

DRUGS (20)
  1. LEVOFLOXACIN [Suspect]
     Active Substance: LEVOFLOXACIN
     Indication: Urinary tract infection
     Route: 048
     Dates: start: 20180922, end: 20181002
  2. LEVOFLOXACIN [Suspect]
     Active Substance: LEVOFLOXACIN
     Indication: Renal graft infection
     Route: 048
  3. LEVOFLOXACIN [Suspect]
     Active Substance: LEVOFLOXACIN
     Route: 048
  4. LEVOFLOXACIN [Suspect]
     Active Substance: LEVOFLOXACIN
     Route: 048
     Dates: start: 20181006, end: 20181014
  5. LEVOFLOXACIN [Suspect]
     Active Substance: LEVOFLOXACIN
     Route: 048
     Dates: start: 20180831, end: 20180902
  6. VALACYCLOVIR HYDROCHLORIDE [Suspect]
     Active Substance: VALACYCLOVIR HYDROCHLORIDE
     Indication: Herpes zoster
  7. TACROLIMUS [Concomitant]
     Active Substance: TACROLIMUS
     Indication: Immunosuppressant drug therapy
     Dosage: EVERY MORNING
  8. TACROLIMUS [Concomitant]
     Active Substance: TACROLIMUS
     Dosage: EVERY MORNING
  9. PREDNISOLONE [Concomitant]
     Active Substance: PREDNISOLONE
     Indication: Immunosuppressant drug therapy
  10. LISINOPRIL [Concomitant]
     Active Substance: LISINOPRIL
     Indication: Hypertension
  11. CARVEDILOL [Concomitant]
     Active Substance: CARVEDILOL
     Indication: Product used for unknown indication
  12. SEVELAMER [Concomitant]
     Active Substance: SEVELAMER
     Indication: Product used for unknown indication
     Dosage: WITH MEALS
  13. CHOLECALCIFEROL [Concomitant]
     Active Substance: CHOLECALCIFEROL
     Indication: Product used for unknown indication
     Dosage: 1000 UNIT
  14. FOLATE SODIUM [Concomitant]
     Active Substance: FOLATE SODIUM
     Indication: Product used for unknown indication
  15. CALCIUM CARBONATE [Concomitant]
     Active Substance: CALCIUM CARBONATE
     Indication: Product used for unknown indication
     Dosage: WITH MEALS
  16. CALCIUM CARBONATE [Concomitant]
     Active Substance: CALCIUM CARBONATE
     Dosage: BEDTIME
  17. DARBEPOETIN ALFA [Concomitant]
     Active Substance: DARBEPOETIN ALFA
     Indication: Product used for unknown indication
     Route: 042
  18. IRON SUCROSE [Concomitant]
     Active Substance: IRON SUCROSE
     Indication: Product used for unknown indication
     Route: 042
  19. PARICALCITOL [Concomitant]
     Active Substance: PARICALCITOL
     Indication: Product used for unknown indication
     Dosage: WITH EACH DIALYSIS TREATMENT
     Route: 042
  20. ETELCALCETIDE [Concomitant]
     Active Substance: ETELCALCETIDE
     Indication: Product used for unknown indication
     Dosage: WITH EACH DIALYSIS TREATMENT
     Route: 042

REACTIONS (5)
  - Engraftment syndrome [Unknown]
  - Transplant failure [Unknown]
  - Pyelonephritis [Unknown]
  - Pemphigoid [Recovered/Resolved]
  - Treatment noncompliance [Unknown]

NARRATIVE: CASE EVENT DATE: 20181009
